FAERS Safety Report 4599732-4 (Version None)
Quarter: 2005Q1

REPORT INFORMATION
  Report Type: 
  Country: None (occurrence: None)
  Receive Date: 20050303
  Receipt Date: 20050214
  Transmission Date: 20050727
  Serious: Yes (Other)
  Sender: FDA-Public Use
  Company Number: USA050290710

PATIENT
  Age: 59 Year
  Sex: Male

DRUGS (2)
  1. XIGRIS [Suspect]
     Indication: SEPSIS
     Dosage: 24 UG/KG/HR/96 HOUR
     Dates: start: 20050204, end: 20050209
  2. DOPAMINE [Concomitant]

REACTIONS (2)
  - DISEASE RECURRENCE [None]
  - SEPSIS [None]
